FAERS Safety Report 8587578 (Version 3)
Quarter: 2012Q4

REPORT INFORMATION
  Report Type: 
  Country: US (occurrence: US)
  Receive Date: 20120531
  Receipt Date: 20121010
  Transmission Date: 20130627
  Serious: Yes (Hospitalization, Other)
  Sender: FDA-Public Use
  Company Number: US-ASTRAZENECA-2012SE33532

PATIENT

DRUGS (20)
  1. NEXIUM [Suspect]
     Indication: GASTROOESOPHAGEAL REFLUX DISEASE
     Route: 048
     Dates: start: 2007, end: 2011
  2. NEXIUM [Suspect]
     Indication: GASTROOESOPHAGEAL REFLUX DISEASE
     Route: 048
  3. NEXIUM [Suspect]
     Indication: GASTROOESOPHAGEAL REFLUX DISEASE
     Route: 048
     Dates: start: 20100721
  4. LOVAZA [Concomitant]
     Dates: start: 201007
  5. ALENDRONATE SODIUM/FOSAMAX [Concomitant]
     Dates: start: 201007
  6. ALKERAN [Concomitant]
     Dates: start: 201007
  7. LEVOXYL [Concomitant]
     Dates: start: 201007
  8. DEXAMETHASONE [Concomitant]
     Dates: start: 201007
  9. LEXAPRO [Concomitant]
     Dosage: 10 TO 20 MG
     Dates: start: 201007
  10. BUPROPION HCL SR [Concomitant]
  11. NUVIGIL [Concomitant]
  12. DIAZEPAM [Concomitant]
  13. FUROSEMIDE [Concomitant]
     Dates: start: 201007
  14. PREDNISONE [Concomitant]
     Dates: start: 201007
  15. IBUPROFEN [Concomitant]
     Dates: start: 201007
  16. TESTIM [Concomitant]
     Dates: start: 201007
  17. PRIMIDONE [Concomitant]
     Dates: start: 201007
  18. VYTORIN [Concomitant]
     Dates: start: 201007
  19. POTASSIUM [Concomitant]
     Dates: start: 201007
  20. METAMUCIL [Concomitant]
     Dates: start: 201007

REACTIONS (5)
  - Back pain [Unknown]
  - Nerve root compression [Unknown]
  - Spinal fracture [Unknown]
  - Spinal compression fracture [Unknown]
  - Osteoporosis [Unknown]
